FAERS Safety Report 7901898-2 (Version None)
Quarter: 2011Q4

REPORT INFORMATION
  Report Type: 
  Country: None (occurrence: None)
  Receive Date: 20111108
  Receipt Date: 20111028
  Transmission Date: 20120403
  Serious: Yes (Hospitalization)
  Sender: FDA-Public Use
  Company Number: US-BAXTER-2011BH034588

PATIENT
  Age: 70 Year
  Sex: Male

DRUGS (2)
  1. CALCITRIOL [Concomitant]
     Indication: HYPERPARATHYROIDISM
     Route: 048
  2. DIANEAL [Suspect]
     Indication: PERITONEAL DIALYSIS
     Route: 033

REACTIONS (2)
  - HYPOCALCAEMIA [None]
  - HYPOTENSION [None]
